FAERS Safety Report 7485897-3 (Version None)
Quarter: 2011Q2

REPORT INFORMATION
  Report Type: 
  Country: None (occurrence: None)
  Receive Date: 20110517
  Receipt Date: 20110120
  Transmission Date: 20111010
  Serious: Yes (Other)
  Sender: FDA-Public Use
  Company Number: US-BAYER-2011-005377

PATIENT
  Age: 66 Year
  Sex: Female
  Weight: 86.168 kg

DRUGS (12)
  1. VITAMIN B COMPLEX CAP [Concomitant]
  2. VITAMIN C [Concomitant]
     Dosage: 250 MG, UNK
  3. FLEXERIL [Concomitant]
     Dosage: 10 MG, UNK
  4. OMEPRAZOLE [Concomitant]
     Dosage: 20 MG, UNK
  5. BETASERON [Suspect]
     Indication: MULTIPLE SCLEROSIS
     Dosage: 1 ML, QOD
     Route: 058
     Dates: start: 19940401, end: 20110116
  6. FISH OIL [Concomitant]
  7. PROVIGIL [Concomitant]
     Dosage: 200 MG, UNK
  8. BACLOFEN [Concomitant]
     Dosage: 10 MG, UNK
  9. FUROSEMIDE [Concomitant]
     Dosage: 20 MG, UNK
  10. LIPITOR [Concomitant]
     Dosage: 10 MG, UNK
  11. CINNAMON [Concomitant]
     Dosage: 500 MG, UNK
  12. VITAMIN D [Concomitant]

REACTIONS (3)
  - CONVULSION [None]
  - FEELING COLD [None]
  - DYSKINESIA [None]
